FAERS Safety Report 14290095 (Version 1)
Quarter: 2017Q4

REPORT INFORMATION
  Report Type: Spontaneous
  Country: US (occurrence: US)
  Receive Date: 20171215
  Receipt Date: 20171215
  Transmission Date: 20180321
  Serious: No
  Sender: FDA-Public Use
  Company Number: US-TEVA-758925ACC

PATIENT
  Sex: Male

DRUGS (4)
  1. VESICARE [Suspect]
     Active Substance: SOLIFENACIN SUCCINATE
     Indication: BLADDER DISORDER
     Dosage: 10 MILLIGRAM DAILY;
     Route: 048
     Dates: start: 201701
  2. WARFARIN [Concomitant]
     Active Substance: WARFARIN
  3. DONEPEZIL. [Concomitant]
     Active Substance: DONEPEZIL
  4. OXYBUTYNIN HYDROCHLORIDE [Suspect]
     Active Substance: OXYBUTYNIN CHLORIDE
     Indication: BLADDER DISORDER
     Route: 065

REACTIONS (1)
  - Cystitis [Recovered/Resolved]
